FAERS Safety Report 6330107-3 (Version None)
Quarter: 2009Q3

REPORT INFORMATION
  Report Type: 
  Country: None (occurrence: None)
  Receive Date: 20090827
  Receipt Date: 20090819
  Transmission Date: 20100115
  Serious: Yes (Hospitalization)
  Sender: FDA-Public Use
  Company Number: US-BIOGENIDEC-2009BI023816

PATIENT
  Age: 57 Year
  Sex: Female

DRUGS (4)
  1. TYSABRI [Suspect]
     Indication: MULTIPLE SCLEROSIS
     Route: 042
     Dates: start: 20061215, end: 20070518
  2. TYSABRI [Suspect]
     Route: 042
     Dates: start: 20080319
  3. CIPRO [Concomitant]
     Indication: DRUG USE FOR UNKNOWN INDICATION
  4. TIZANIDINE HCL [Concomitant]
     Indication: DRUG USE FOR UNKNOWN INDICATION

REACTIONS (3)
  - ANXIETY [None]
  - MUSCULAR WEAKNESS [None]
  - URINARY TRACT INFECTION [None]
